FAERS Safety Report 7633465-2 (Version None)
Quarter: 2011Q3

REPORT INFORMATION
  Report Type: 
  Country: None (occurrence: None)
  Receive Date: 20110725
  Receipt Date: 20110307
  Transmission Date: 20111222
  Serious: Yes (Hospitalization)
  Sender: FDA-Public Use
  Company Number: US-BRISTOL-MYERS SQUIBB COMPANY-15594039

PATIENT
  Age: 6 Decade
  Sex: Male

DRUGS (1)
  1. SPRYCEL [Suspect]
     Indication: CHRONIC MYELOID LEUKAEMIA
     Dosage: 1 DF = 70-75MG,SWITCHED TO 70MGOD,THEN 50MGOD, 2-2.5 YEARS AGO

REACTIONS (2)
  - PLEURAL EFFUSION [None]
  - HYPERTENSION [None]
